FAERS Safety Report 19011946 (Version 1)
Quarter: 2021Q1

REPORT INFORMATION
  Report Type: Spontaneous
  Country: US (occurrence: US)
  Receive Date: 20210315
  Receipt Date: 20210315
  Transmission Date: 20210420
  Serious: Yes (Hospitalization)
  Sender: FDA-Public Use
  Company Number: None

PATIENT
  Age: 65 Year
  Sex: Male
  Weight: 135 kg

DRUGS (2)
  1. LISINOPRIL (LISINOPRIL 10MG TAB) [Suspect]
     Active Substance: LISINOPRIL
     Indication: HYPERTENSION
     Route: 048
     Dates: start: 20170228, end: 20201213
  2. ASPIRIN (ASPIRIN 81MG TAB, CHEWABLE) [Suspect]
     Active Substance: ASPIRIN
     Route: 048
     Dates: start: 20060526, end: 20201213

REACTIONS (1)
  - Angioedema [None]

NARRATIVE: CASE EVENT DATE: 20201213
